FAERS Safety Report 12098804 (Version 2)
Quarter: 2016Q1

REPORT INFORMATION
  Report Type: Report from Study
  Country: US (occurrence: US)
  Receive Date: 20160222
  Receipt Date: 20160301
  Transmission Date: 20160526
  Serious: No
  Sender: FDA-Public Use
  Company Number: US-AMGEN-USASL2016019530

PATIENT
  Age: 78 Year
  Sex: Female

DRUGS (1)
  1. ENBREL [Suspect]
     Active Substance: ETANERCEPT
     Indication: RHEUMATOID ARTHRITIS
     Dosage: UNK
     Route: 065
     Dates: start: 20140204

REACTIONS (11)
  - Burning sensation [Unknown]
  - Asthenia [Unknown]
  - Condition aggravated [Not Recovered/Not Resolved]
  - Adverse drug reaction [Unknown]
  - Infection [Unknown]
  - Hot flush [Unknown]
  - Hypophagia [Unknown]
  - Pain [Unknown]
  - Urinary tract infection [Unknown]
  - Oral mucosal eruption [Unknown]
  - Mouth swelling [Unknown]

NARRATIVE: CASE EVENT DATE: 201602
